FAERS Safety Report 8000855-8 (Version None)
Quarter: 2011Q4

REPORT INFORMATION
  Report Type: 
  Country: None (occurrence: None)
  Receive Date: 20111222
  Receipt Date: 20111215
  Transmission Date: 20120403
  Serious: Yes (Other)
  Sender: FDA-Public Use
  Company Number: US-US-EMD SERONO, INC.-7102266

PATIENT
  Sex: Female

DRUGS (3)
  1. DIFLUCAN [Suspect]
     Indication: OESOPHAGEAL STENOSIS
  2. REBIF [Suspect]
     Route: 058
     Dates: start: 20111203
  3. REBIF [Suspect]
     Indication: PRODUCT USED FOR UNKNOWN INDICATION
     Route: 058
     Dates: start: 20111123

REACTIONS (6)
  - DYSPHONIA [None]
  - LOSS OF CONSCIOUSNESS [None]
  - VOMITING PROJECTILE [None]
  - HEAD INJURY [None]
  - INJECTION SITE ERYTHEMA [None]
  - CONVULSION [None]
